FAERS Safety Report 9409340 (Version 1)
Quarter: 2013Q3

REPORT INFORMATION
  Report Type: Spontaneous
  Country: US (occurrence: US)
  Receive Date: 20130719
  Receipt Date: 20130719
  Transmission Date: 20140515
  Serious: No
  Sender: FDA-Public Use
  Company Number: US-PFIZER INC-2013211867

PATIENT
  Age: 55 Year
  Sex: Female
  Weight: 58.96 kg

DRUGS (1)
  1. ALPRAZOLAM [Suspect]
     Indication: INSOMNIA
     Dosage: UNK (TAKING HALF OF 0.5 MG TABLET)
     Route: 048
     Dates: start: 2012

REACTIONS (2)
  - Drug ineffective for unapproved indication [Unknown]
  - Poor quality drug administered [Unknown]
